FAERS Safety Report 21962846 (Version 1)
Quarter: 2023Q1

REPORT INFORMATION
  Report Type: Report from Study
  Country: IT (occurrence: IT)
  Receive Date: 20230207
  Receipt Date: 20230207
  Transmission Date: 20230417
  Serious: Yes (Other)
  Sender: FDA-Public Use
  Company Number: None

PATIENT

DRUGS (5)
  1. PEGASPARGASE [Suspect]
     Active Substance: PEGASPARGASE
     Indication: Acute lymphocytic leukaemia
     Dosage: 1400 UI ON 22/12/22 AND 09/01/23
     Route: 042
     Dates: start: 20221222, end: 20230109
  2. VINCRISTINE [Suspect]
     Active Substance: VINCRISTINE
     Indication: Acute lymphocytic leukaemia
     Dosage: 0.84 MG ON 19, 28/12/22, 04, 11/01/23.
     Route: 042
     Dates: start: 20221219, end: 20230111
  3. DAUNORUBICIN [Suspect]
     Active Substance: DAUNORUBICIN
     Indication: Acute lymphocytic leukaemia
     Dosage: 16.8 MG ON 19,  28/12/22, 04, 11/01/23
     Route: 042
     Dates: start: 20221219, end: 20230111
  4. PREDNISONE [Concomitant]
     Active Substance: PREDNISONE
     Indication: Acute lymphocytic leukaemia
     Dosage: 10 MG (5 MG X 2 VV/DAY) FROM 20/12/22 TO 11/01/2325 MG ( ? CPS X 2VV/DAY) FROM 20/12/22 TO 11/01/23
     Route: 048
     Dates: start: 20221220
  5. ESOMEPRAZOLE [Concomitant]
     Active Substance: ESOMEPRAZOLE
     Indication: Product used for unknown indication
     Dosage: 10 MG, QD10 MG/DAY FROM 12/12/22 TO 19/01/23
     Route: 048
     Dates: start: 20221212

REACTIONS (2)
  - Pancytopenia [Recovered/Resolved]
  - Anaemia [Recovering/Resolving]

NARRATIVE: CASE EVENT DATE: 20221222
